FAERS Safety Report 13644920 (Version 1)
Quarter: 2017Q2

REPORT INFORMATION
  Report Type: Spontaneous
  Country: US (occurrence: US)
  Receive Date: 20170612
  Receipt Date: 20170612
  Transmission Date: 20170830
  Serious: No
  Sender: FDA-Public Use
  Company Number: US-ROCHE-1302520

PATIENT
  Sex: Female

DRUGS (11)
  1. VITAMIN E [Concomitant]
     Active Substance: .ALPHA.-TOCOPHEROL
  2. FLAXSEED [Concomitant]
     Active Substance: FLAX SEED
  3. AQUAPHOR (UNITED STATES) [Concomitant]
  4. DITROPAN [Concomitant]
     Active Substance: OXYBUTYNIN CHLORIDE
  5. COENZYME Q10 [Concomitant]
     Active Substance: UBIDECARENONE
  6. VITAMIN D3 [Concomitant]
     Active Substance: CHOLECALCIFEROL
  7. VITAMIN C [Concomitant]
     Active Substance: ASCORBIC ACID
  8. XELODA [Suspect]
     Active Substance: CAPECITABINE
     Indication: BREAST CANCER
     Route: 048
     Dates: start: 20130916
  9. CITRACAL [Concomitant]
     Active Substance: CALCIUM CITRATE
  10. CURCUMIN [Concomitant]
     Active Substance: CURCUMIN
  11. ARTEMISININ [Concomitant]
     Active Substance: DIETARY SUPPLEMENT

REACTIONS (5)
  - Skin discolouration [Recovering/Resolving]
  - Palmar-plantar erythrodysaesthesia syndrome [Unknown]
  - Skin exfoliation [Recovering/Resolving]
  - Pain in extremity [Unknown]
  - Sensory loss [Unknown]
